FAERS Safety Report 21100036 (Version 2)
Quarter: 2022Q3

REPORT INFORMATION
  Report Type: Spontaneous
  Country: CA (occurrence: CA)
  Receive Date: 20220719
  Receipt Date: 20220908
  Transmission Date: 20221027
  Serious: Yes (Other)
  Sender: FDA-Public Use
  Company Number: CA-NOVARTISPH-NVSC2022CA160901

PATIENT
  Sex: Male

DRUGS (22)
  1. BASILIXIMAB [Suspect]
     Active Substance: BASILIXIMAB
     Indication: Acute graft versus host disease
     Dosage: 20 MG
     Route: 042
     Dates: start: 20220316, end: 20220325
  2. BASILIXIMAB [Suspect]
     Active Substance: BASILIXIMAB
     Dosage: 20 MG (4 DOSES)
     Route: 042
     Dates: start: 20220804, end: 20220825
  3. TACROLIMUS [Suspect]
     Active Substance: TACROLIMUS
     Indication: Prophylaxis against graft versus host disease
     Dosage: UNK
     Route: 065
  4. PREDNISONE [Suspect]
     Active Substance: PREDNISONE
     Indication: Product used for unknown indication
     Dosage: 30 MG
     Route: 065
  5. PREDNISONE [Suspect]
     Active Substance: PREDNISONE
     Dosage: 20 MG
     Route: 065
     Dates: start: 20220623
  6. PREDNISONE [Suspect]
     Active Substance: PREDNISONE
     Dosage: 1 MG/KG
     Route: 065
  7. PREDNISONE [Suspect]
     Active Substance: PREDNISONE
     Dosage: 30 MG
     Route: 048
     Dates: start: 20220625
  8. PREDNISONE [Suspect]
     Active Substance: PREDNISONE
     Dosage: 50 MG, BID
     Route: 048
     Dates: start: 20220628
  9. PREDNISONE [Suspect]
     Active Substance: PREDNISONE
     Dosage: 17.5 MG, QMO (STARTED TAPER BY 2.5 MG PO Q MONTH)
     Route: 048
     Dates: start: 20220721
  10. MYCOPHENOLATE MOFETIL [Suspect]
     Active Substance: MYCOPHENOLATE MOFETIL
     Indication: Prophylaxis against graft versus host disease
     Dosage: UNK
     Route: 065
  11. CYCLOPHOSPHAMIDE [Suspect]
     Active Substance: CYCLOPHOSPHAMIDE
     Indication: Prophylaxis against graft versus host disease
     Dosage: UNK
     Route: 065
  12. RUXOLITINIB [Concomitant]
     Active Substance: RUXOLITINIB
     Indication: Product used for unknown indication
     Dosage: 5 MG, BID
     Route: 065
     Dates: start: 20220728
  13. BETAMETHASONE [Concomitant]
     Active Substance: BETAMETHASONE
     Indication: Product used for unknown indication
     Dosage: 0.1 %
     Route: 065
  14. POSACONAZOLE [Concomitant]
     Active Substance: POSACONAZOLE
     Indication: Product used for unknown indication
     Dosage: 300 MG, QD
     Route: 048
     Dates: start: 202208
  15. SEPTRA DS [Concomitant]
     Active Substance: SULFAMETHOXAZOLE\TRIMETHOPRIM
     Indication: Product used for unknown indication
     Dosage: 1 DOSAGE FORM, BID (ON MONDAYS AND THURSDAYS)
     Route: 048
  16. VALACYCLOVIR [Concomitant]
     Active Substance: VALACYCLOVIR HYDROCHLORIDE
     Indication: Product used for unknown indication
     Dosage: 500 MG, BID
     Route: 065
  17. AMLODIPINE [Concomitant]
     Active Substance: AMLODIPINE BESYLATE
     Indication: Product used for unknown indication
     Dosage: 5 MG, QD
     Route: 065
  18. TAMSULOSIN [Concomitant]
     Active Substance: TAMSULOSIN
     Indication: Product used for unknown indication
     Dosage: 0.4 MG, QD
     Route: 065
  19. PANTOPRAZOLE [Concomitant]
     Active Substance: PANTOPRAZOLE
     Indication: Product used for unknown indication
     Dosage: 40 MG, QD
     Route: 065
     Dates: start: 202206
  20. VITAMIN D [Concomitant]
     Active Substance: VITAMIN D NOS
     Indication: Product used for unknown indication
     Dosage: 5000 UNITED STATES PHARMACOPEIA UNIT, QD
     Route: 065
  21. MAGNESIUM [Concomitant]
     Active Substance: MAGNESIUM
     Indication: Product used for unknown indication
     Dosage: 200 MG, BID
     Route: 065
  22. TYLENOL [Concomitant]
     Active Substance: ACETAMINOPHEN
     Indication: Product used for unknown indication
     Dosage: UNK, PRN
     Route: 065

REACTIONS (3)
  - Acute graft versus host disease in skin [Unknown]
  - Disease recurrence [Unknown]
  - Condition aggravated [Recovering/Resolving]
